FAERS Safety Report 5007370-4 (Version None)
Quarter: 2006Q2

REPORT INFORMATION
  Report Type: 
  Country: None (occurrence: None)
  Receive Date: 20060517
  Receipt Date: 20060501
  Transmission Date: 20061013
  Serious: Yes (Other)
  Sender: FDA-Public Use
  Company Number: US200605000384

PATIENT
  Age: 47 Year
  Sex: Female

DRUGS (5)
  1. HUMALOG [Suspect]
     Indication: DIABETES MELLITUS
     Dosage: 8 U, 4/D,
     Dates: start: 20060422
  2. HUMULIN N [Suspect]
     Indication: DIABETES MELLITUS
  3. HUMULIN 70/30 [Suspect]
     Indication: DIABETES MELLITUS
  4. HUMULIN R [Suspect]
     Indication: DIABETES MELLITUS
  5. LANTUS [Concomitant]

REACTIONS (9)
  - BLOOD GLUCOSE DECREASED [None]
  - BLOOD INSULIN DECREASED [None]
  - COLITIS ULCERATIVE [None]
  - DRUG TOXICITY [None]
  - FEELING ABNORMAL [None]
  - INFLAMMATION [None]
  - MUSCULOSKELETAL DISORDER [None]
  - PAIN [None]
  - RHEUMATOID ARTHRITIS [None]
